FAERS Safety Report 24155522 (Version 1)
Quarter: 2024Q3

REPORT INFORMATION
  Report Type: Spontaneous
  Country: VE (occurrence: VE)
  Receive Date: 20240731
  Receipt Date: 20240731
  Transmission Date: 20241016
  Serious: Yes (Other)
  Sender: ROCHE
  Company Number: VE-ROCHE-10000037327

PATIENT
  Age: 61 Year
  Sex: Female
  Weight: 56 kg

DRUGS (8)
  1. RITUXIMAB [Suspect]
     Active Substance: RITUXIMAB
     Indication: Diffuse large B-cell lymphoma
     Dosage: DOSE AND FREQUENCY WERE NOT REPORTED
     Route: 065
     Dates: start: 202310
  2. RITUXIMAB [Suspect]
     Active Substance: RITUXIMAB
     Dosage: DOSE 375 MG/METER2
     Route: 065
  3. POLATUZUMAB VEDOTIN [Suspect]
     Active Substance: POLATUZUMAB VEDOTIN
     Indication: Diffuse large B-cell lymphoma
     Dosage: DOSE AND FREQUENCY WERE NOT REPORTED
     Route: 065
     Dates: start: 202310
  4. BENDAMUSTINE [Suspect]
     Active Substance: BENDAMUSTINE
     Indication: Diffuse large B-cell lymphoma
     Dosage: DOSE AND FREQUENCY WERE NOT REPORTED
     Route: 065
     Dates: start: 202310
  5. NIVOLUMAB [Concomitant]
     Active Substance: NIVOLUMAB
     Indication: Diffuse large B-cell lymphoma
     Dosage: DOSE AND FREQUENCY WERE NOT REPORTED
  6. GEMCITABINE [Concomitant]
     Active Substance: GEMCITABINE
     Indication: Diffuse large B-cell lymphoma
     Dosage: DOSE 1 G/METER2
  7. OXALIPLATIN [Concomitant]
     Active Substance: OXALIPLATIN
     Indication: Diffuse large B-cell lymphoma
     Dosage: DOSE 1 G/METER2
  8. LENALIDOMIDE [Concomitant]
     Active Substance: LENALIDOMIDE
     Indication: Diffuse large B-cell lymphoma
     Dosage: DOSE 15 - 25 MG/D (AS REPORTED)

REACTIONS (2)
  - Disease recurrence [Unknown]
  - Off label use [Unknown]
